FAERS Safety Report 10506861 (Version 1)
Quarter: 2014Q3

REPORT INFORMATION
  Report Type: Spontaneous
  Country: US (occurrence: None)
  Receive Date: 20140915
  Receipt Date: 20140915
  Transmission Date: 20150326
  Serious: Yes (Other)
  Sender: FDA-Public Use
  Company Number: 2013-US-000099

PATIENT
  Age: 41 Year
  Sex: Male
  Weight: 79.4 kg

DRUGS (2)
  1. MODAFINIL (MODAFINIL) [Suspect]
     Active Substance: MODAFINIL
     Indication: NARCOLEPSY
     Dates: start: 2012
  2. XYREM [Suspect]
     Active Substance: SODIUM OXYBATE
     Indication: NARCOLEPSY
     Route: 048
     Dates: start: 20130810, end: 201308

REACTIONS (5)
  - Depression [None]
  - Disturbance in attention [None]
  - Fatigue [None]
  - Anxiety [None]
  - Restlessness [None]

NARRATIVE: CASE EVENT DATE: 201308
